FAERS Safety Report 7627324-9 (Version None)
Quarter: 2011Q3

REPORT INFORMATION
  Report Type: 
  Country: None (occurrence: None)
  Receive Date: 20110721
  Receipt Date: 20110720
  Transmission Date: 20111222
  Serious: No
  Sender: FDA-Public Use
  Company Number: US-TEVA-291526USA

PATIENT
  Sex: Female
  Weight: 60.382 kg

DRUGS (1)
  1. PLAN B ONE-STEP [Suspect]
     Indication: POST COITAL CONTRACEPTION
     Dosage: 1.5 MILLIGRAM;
     Route: 048
     Dates: start: 20110606, end: 20110606

REACTIONS (3)
  - DRUG INEFFECTIVE [None]
  - PREGNANCY AFTER POST COITAL CONTRACEPTION [None]
  - PHARYNGITIS [None]
